FAERS Safety Report 16514888 (Version 3)
Quarter: 2019Q3

REPORT INFORMATION
  Report Type: Spontaneous
  Country: PL (occurrence: PL)
  Receive Date: 20190702
  Receipt Date: 20190826
  Transmission Date: 20191004
  Serious: Yes (Other)
  Sender: FDA-Public Use
  Company Number: PL-PFIZER INC-2019272763

PATIENT
  Age: 56 Year

DRUGS (5)
  1. NIMESULID [Suspect]
     Active Substance: NIMESULIDE
     Dosage: 200 MG, DAILY
  2. METHYLPREDNISOLONE. [Suspect]
     Active Substance: METHYLPREDNISOLONE
     Dosage: UNK
     Route: 065
  3. METHOTREXATE SODIUM. [Suspect]
     Active Substance: METHOTREXATE SODIUM
     Dosage: 20 MG, WEEKLY
     Route: 048
     Dates: start: 2010, end: 2011
  4. DICLOFENAC [Suspect]
     Active Substance: DICLOFENAC
     Dosage: 150 MG, DAILY
  5. DICLOFENAC [Suspect]
     Active Substance: DICLOFENAC
     Dosage: 6 MG DAILY (4-6 MG/DAY)

REACTIONS (3)
  - Joint range of motion decreased [Unknown]
  - Pain [Unknown]
  - Loss of personal independence in daily activities [Unknown]
